FAERS Safety Report 15724787 (Version 4)
Quarter: 2019Q1

REPORT INFORMATION
  Report Type: Spontaneous
  Country: JP (occurrence: JP)
  Receive Date: 20181214
  Receipt Date: 20190301
  Transmission Date: 20190417
  Serious: Yes (Other)
  Sender: FDA-Public Use
  Company Number: JP-ALLERGAN-1857760US

PATIENT
  Age: 70 Year
  Sex: Female

DRUGS (2)
  1. BOTOX [Suspect]
     Active Substance: ONABOTULINUMTOXINA
     Dosage: UNK, SINGLE
     Route: 030
     Dates: start: 2017, end: 2017
  2. BOTOX [Suspect]
     Active Substance: ONABOTULINUMTOXINA
     Indication: MUSCLE SPASMS
     Dosage: UNK, SINGLE
     Route: 030
     Dates: start: 201811, end: 201811

REACTIONS (9)
  - Osteoporosis [Unknown]
  - Back pain [Unknown]
  - Hypoaesthesia [Unknown]
  - Rhinorrhoea [Recovered/Resolved]
  - Vitreous floaters [Unknown]
  - Condition aggravated [Unknown]
  - Arthralgia [Unknown]
  - Headache [Recovered/Resolved]
  - Hydrocephalus [Unknown]

NARRATIVE: CASE EVENT DATE: 201606
